FAERS Safety Report 11287426 (Version 1)
Quarter: 2015Q2

REPORT INFORMATION
  Report Type: Spontaneous
  Country: US (occurrence: None)
  Receive Date: 20150623
  Receipt Date: 20150623
  Transmission Date: 20150821
  Serious: Yes (Other)
  Sender: FDA-Public Use
  Company Number: RB-73071-2015

PATIENT
  Sex: Female

DRUGS (1)
  1. MUCINEX [Suspect]
     Active Substance: GUAIFENESIN
     Indication: PRODUCT USED FOR UNKNOWN INDICATION
     Dosage: (FIRST TOOK ONE TABLET AND THEN STARTED TO TAKE TWO. UNKNOWN)

REACTIONS (3)
  - Abdominal pain upper [None]
  - Drug ineffective [None]
  - Rectal haemorrhage [None]
